FAERS Safety Report 7414386-7 (Version None)
Quarter: 2011Q2

REPORT INFORMATION
  Report Type: 
  Country: None (occurrence: None)
  Receive Date: 20110407
  Receipt Date: 20110323
  Transmission Date: 20111010
  Serious: Yes (Hospitalization, Disabling)
  Sender: FDA-Public Use
  Company Number: AUR-APL-2011-01073

PATIENT
  Age: 64 Year
  Sex: Male

DRUGS (1)
  1. ALENDRONATE SODIUM [Suspect]
     Indication: PROPHYLAXIS
     Dosage: 70MG
     Dates: end: 20110304

REACTIONS (4)
  - OESOPHAGEAL STENOSIS [None]
  - OESOPHAGITIS [None]
  - GASTRIC ULCER [None]
  - PAIN [None]
